FAERS Safety Report 11141362 (Version 1)
Quarter: 2015Q2

REPORT INFORMATION
  Report Type: Spontaneous
  Country: US (occurrence: US)
  Receive Date: 20150527
  Receipt Date: 20150527
  Transmission Date: 20150821
  Serious: Yes (Hospitalization)
  Sender: FDA-Public Use
  Company Number: US-MALLINCKRODT-QSC-2014-0635

PATIENT
  Sex: Male
  Weight: 101.59 kg

DRUGS (1)
  1. H.P. ACTHAR [Suspect]
     Active Substance: CORTICOTROPIN
     Indication: PROTEINURIA
     Dosage: 80 UNITS, BIW
     Route: 058
     Dates: start: 20140615, end: 20140911

REACTIONS (14)
  - Dysgeusia [Unknown]
  - Dysphonia [Unknown]
  - Visual impairment [Unknown]
  - Asthenia [Unknown]
  - Nervousness [Unknown]
  - Face oedema [Unknown]
  - Cellulitis [Unknown]
  - Gingival pain [Unknown]
  - Weight increased [Recovering/Resolving]
  - Dry mouth [Unknown]
  - Irritability [Unknown]
  - Oral discomfort [Unknown]
  - Peripheral swelling [Unknown]
  - Infection [Unknown]

NARRATIVE: CASE EVENT DATE: 2014
